FAERS Safety Report 18502294 (Version 1)
Quarter: 2020Q4

REPORT INFORMATION
  Report Type: Other
  Country: US (occurrence: US)
  Receive Date: 20201113
  Receipt Date: 20201113
  Transmission Date: 20210114
  Serious: No
  Sender: FDA-Public Use
  Company Number: US-LEADIANT BIOSCIENCES INC-2020STPI000142

PATIENT
  Sex: Male

DRUGS (23)
  1. FLUTICASONE. [Concomitant]
     Active Substance: FLUTICASONE
  2. MELATONIN [Concomitant]
     Active Substance: MELATONIN
  3. ASPIRIN [ACETYLSALICYLIC ACID] [Concomitant]
     Active Substance: ASPIRIN
  4. FLUORIDE [SODIUM FLUORIDE] [Concomitant]
     Active Substance: SODIUM FLUORIDE
  5. SYNTHROID [Concomitant]
     Active Substance: LEVOTHYROXINE SODIUM
  6. LAMOTRIGINE. [Concomitant]
     Active Substance: LAMOTRIGINE
  7. PHOSPHA 250 NEUTRAL [Concomitant]
     Active Substance: POTASSIUM PHOSPHATE, MONOBASIC\SODIUM PHOSPHATE, DIBASIC, ANHYDROUS\SODIUM PHOSPHATE, MONOBASIC, MONOHYDRATE
  8. CALCITRIOL. [Concomitant]
     Active Substance: CALCITRIOL
  9. MULTIVITAMIN + MINERAL [Concomitant]
     Active Substance: MINERALS\VITAMINS
  10. NAC 500 [Concomitant]
  11. OMEPRAZOLE. [Concomitant]
     Active Substance: OMEPRAZOLE
  12. VITAMIN D3 [Concomitant]
     Active Substance: CHOLECALCIFEROL
  13. SODIUM BICARBONATE. [Concomitant]
     Active Substance: SODIUM BICARBONATE
  14. AMOXICILLIN. [Concomitant]
     Active Substance: AMOXICILLIN
  15. POTASSIUM [Concomitant]
     Active Substance: POTASSIUM
  16. CYSTARAN [Suspect]
     Active Substance: CYSTEAMINE HYDROCHLORIDE
     Indication: CYSTINOSIS
     Dosage: 1 DROP, BOTH EYES EVERY HOUR WHILE AWAKE
     Route: 047
     Dates: start: 20140814
  17. FISH OIL [Concomitant]
     Active Substance: FISH OIL
  18. GLUCOSE [GLUCOSE MONOHYDRATE] [Concomitant]
     Active Substance: DEXTROSE MONOHYDRATE
  19. LEVOCARNITIN [Concomitant]
  20. TUMS EX [Concomitant]
     Active Substance: CALCIUM CARBONATE
  21. ZYRTEC [Concomitant]
     Active Substance: CETIRIZINE HYDROCHLORIDE
  22. CYSTAGON [Concomitant]
     Active Substance: CYSTEAMINE BITARTRATE
  23. ELIQUIS [Concomitant]
     Active Substance: APIXABAN

REACTIONS (1)
  - Vision blurred [Not Recovered/Not Resolved]

NARRATIVE: CASE EVENT DATE: 202003
